FAERS Safety Report 16600373 (Version 1)
Quarter: 2019Q3

REPORT INFORMATION
  Report Type: Spontaneous
  Country: IT (occurrence: IT)
  Receive Date: 20190720
  Receipt Date: 20190720
  Transmission Date: 20191004
  Serious: Yes (Life-Threatening, Other)
  Sender: FDA-Public Use
  Company Number: IT-AUROBINDO-AUR-APL-2019-042333

PATIENT

DRUGS (45)
  1. TRUXIMA [Suspect]
     Active Substance: RITUXIMAB-ABBS
     Dosage: 738 MILLIGRAM
     Route: 042
     Dates: start: 20180605
  2. MYOCET [Suspect]
     Active Substance: DOXORUBICIN
     Dosage: 80 MILLIGRAM
     Route: 065
     Dates: start: 20180808
  3. METHYLPREDNISOLONE. [Suspect]
     Active Substance: METHYLPREDNISOLONE
     Indication: DIFFUSE LARGE B-CELL LYMPHOMA
     Dosage: 125 MILLIGRAM
     Route: 065
     Dates: start: 20180417
  4. VINCRISTINE [Suspect]
     Active Substance: VINCRISTINE
     Dosage: 1 MILLIGRAM
     Route: 065
     Dates: start: 20180808
  5. CYCLOPHOSPHAMIDE. [Suspect]
     Active Substance: CYCLOPHOSPHAMIDE
     Dosage: 1034.25 MG
     Route: 065
     Dates: start: 20180606
  6. METHYLPREDNISOLONE. [Suspect]
     Active Substance: METHYLPREDNISOLONE
     Dosage: 125 MILLIGRAM
     Route: 065
     Dates: start: 20180627
  7. BACTRIM [Concomitant]
     Active Substance: SULFAMETHOXAZOLE\TRIMETHOPRIM
     Indication: PRODUCT USED FOR UNKNOWN INDICATION
     Dosage: UNK (1 CPS ON MON-WED-FRI)
     Route: 065
  8. PANTOPRAZOLE [Concomitant]
     Active Substance: PANTOPRAZOLE
     Indication: PRODUCT USED FOR UNKNOWN INDICATION
     Dosage: 40 MILLIGRAM (1 CPS/DIE)
     Route: 065
  9. VINCRISTINE [Suspect]
     Active Substance: VINCRISTINE
     Indication: DIFFUSE LARGE B-CELL LYMPHOMA
     Dosage: 1 MILLIGRAM
     Route: 065
     Dates: start: 20180417
  10. CHLORPHENAMINE [Suspect]
     Active Substance: CHLORPHENIRAMINE MALEATE
     Dosage: 10 MILLIGRAM
     Route: 065
     Dates: start: 20180606
  11. CHLORPHENAMINE [Suspect]
     Active Substance: CHLORPHENIRAMINE MALEATE
     Dosage: 10 MILLIGRAM
     Route: 065
     Dates: start: 20180627
  12. CYCLOPHOSPHAMIDE. [Suspect]
     Active Substance: CYCLOPHOSPHAMIDE
     Dosage: 1034.25 MG
     Route: 065
     Dates: start: 20180627
  13. CYCLOPHOSPHAMIDE. [Suspect]
     Active Substance: CYCLOPHOSPHAMIDE
     Dosage: 1034.25 MG
     Route: 065
     Dates: start: 20180808
  14. METHYLPREDNISOLONE. [Suspect]
     Active Substance: METHYLPREDNISOLONE
     Dosage: 125 MILLIGRAM
     Route: 065
     Dates: start: 20180516
  15. ONDANSETRON [Suspect]
     Active Substance: ONDANSETRON
     Dosage: 8 MILLIGRAM
     Route: 065
     Dates: start: 20180606
  16. ONDANSETRON [Suspect]
     Active Substance: ONDANSETRON
     Dosage: 8 MILLIGRAM
     Route: 065
     Dates: start: 20180718
  17. TRUXIMA [Suspect]
     Active Substance: RITUXIMAB-ABBS
     Indication: DIFFUSE LARGE B-CELL LYMPHOMA
     Dosage: 738.75 MILLIGRAM
     Route: 042
     Dates: start: 20180515
  18. VINCRISTINE [Suspect]
     Active Substance: VINCRISTINE
     Dosage: 1 MILLIGRAM
     Route: 065
     Dates: start: 20180718
  19. MYOCET [Suspect]
     Active Substance: DOXORUBICIN
     Dosage: 68.95 MILLIGRAM
     Route: 065
     Dates: start: 20180627
  20. MYOCET [Suspect]
     Active Substance: DOXORUBICIN
     Dosage: 68.95 MILLIGRAM
     Route: 065
     Dates: start: 20180718
  21. CHLORPHENAMINE [Suspect]
     Active Substance: CHLORPHENIRAMINE MALEATE
     Dosage: 10 MILLIGRAM
     Route: 065
     Dates: start: 20180718
  22. METHYLPREDNISOLONE. [Suspect]
     Active Substance: METHYLPREDNISOLONE
     Dosage: 125 MILLIGRAM
     Route: 065
     Dates: start: 20180718
  23. DEURSIL [Concomitant]
     Active Substance: URSODIOL
     Indication: PRODUCT USED FOR UNKNOWN INDICATION
     Dosage: 300 MILLIGRAM (3CPS/DIE)
     Route: 065
  24. ONDANSETRON [Suspect]
     Active Substance: ONDANSETRON
     Dosage: 8 MILLIGRAM
     Route: 065
     Dates: start: 20180516
  25. ONDANSETRON [Suspect]
     Active Substance: ONDANSETRON
     Dosage: 8 MILLIGRAM
     Route: 065
     Dates: start: 20180627
  26. VINCRISTINE [Suspect]
     Active Substance: VINCRISTINE
     Dosage: 1 MILLIGRAM
     Route: 065
     Dates: start: 20180606
  27. MYOCET [Suspect]
     Active Substance: DOXORUBICIN
     Dosage: 68.95 MILLIGRAM
     Route: 065
     Dates: start: 20180606
  28. CHLORPHENAMINE [Suspect]
     Active Substance: CHLORPHENIRAMINE MALEATE
     Indication: DIFFUSE LARGE B-CELL LYMPHOMA
     Dosage: 10 MILLIGRAM
     Route: 065
     Dates: start: 20180417
  29. CHLORPHENAMINE [Suspect]
     Active Substance: CHLORPHENIRAMINE MALEATE
     Dosage: 10 MILLIGRAM
     Route: 065
     Dates: start: 20180516
  30. CYCLOPHOSPHAMIDE. [Suspect]
     Active Substance: CYCLOPHOSPHAMIDE
     Indication: DIFFUSE LARGE B-CELL LYMPHOMA
     Dosage: 1034.25 MG
     Route: 065
     Dates: start: 20180417
  31. CYCLOPHOSPHAMIDE. [Suspect]
     Active Substance: CYCLOPHOSPHAMIDE
     Dosage: 1034.25 MG
     Route: 065
     Dates: start: 20180718
  32. VINCRISTINE [Suspect]
     Active Substance: VINCRISTINE
     Dosage: 1 MILLIGRAM
     Route: 065
     Dates: start: 20180516
  33. CHLORPHENAMINE [Suspect]
     Active Substance: CHLORPHENIRAMINE MALEATE
     Dosage: 10 MILLIGRAM
     Route: 065
     Dates: start: 20180808
  34. CYCLOPHOSPHAMIDE. [Suspect]
     Active Substance: CYCLOPHOSPHAMIDE
     Dosage: 1034.25 MG
     Route: 065
     Dates: start: 20180516
  35. ZOFRAN [Concomitant]
     Active Substance: ONDANSETRON HYDROCHLORIDE
     Indication: PRODUCT USED FOR UNKNOWN INDICATION
     Dosage: 8 MILLIGRAM ( IF NEEDED)
     Route: 065
  36. TRUXIMA [Suspect]
     Active Substance: RITUXIMAB-ABBS
     Dosage: 738 MILLIGRAM
     Route: 042
     Dates: start: 20180918
  37. MYOCET [Suspect]
     Active Substance: DOXORUBICIN
     Indication: DIFFUSE LARGE B-CELL LYMPHOMA
     Dosage: 68.95 MILLIGRAM
     Route: 065
     Dates: start: 20180417
  38. METHYLPREDNISOLONE. [Suspect]
     Active Substance: METHYLPREDNISOLONE
     Dosage: 125 MILLIGRAM
     Route: 065
     Dates: start: 20180606
  39. METHYLPREDNISOLONE. [Suspect]
     Active Substance: METHYLPREDNISOLONE
     Dosage: 125 MILLIGRAM
     Route: 065
     Dates: start: 20180808
  40. ONDANSETRON [Suspect]
     Active Substance: ONDANSETRON
     Indication: DIFFUSE LARGE B-CELL LYMPHOMA
     Dosage: 8 MILLIGRAM
     Route: 065
     Dates: start: 20180417
  41. ONDANSETRON [Suspect]
     Active Substance: ONDANSETRON
     Dosage: 8 MILLIGRAM
     Route: 065
     Dates: start: 20180808
  42. TRUXIMA [Suspect]
     Active Substance: RITUXIMAB-ABBS
     Dosage: 738 MILLIGRAM
     Route: 042
     Dates: start: 20181009
  43. TRUXIMA [Suspect]
     Active Substance: RITUXIMAB-ABBS
     Dosage: 738 MILLIGRAM
     Route: 042
     Dates: start: 20181030
  44. VINCRISTINE [Suspect]
     Active Substance: VINCRISTINE
     Dosage: 1 MILLIGRAM
     Route: 065
     Dates: start: 20180627
  45. MYOCET [Suspect]
     Active Substance: DOXORUBICIN
     Dosage: 68.95 MILLIGRAM
     Route: 065
     Dates: start: 20180516

REACTIONS (3)
  - Neutropenia [Recovered/Resolved]
  - Dyspnoea [Recovered/Resolved]
  - Rash [Recovered/Resolved]

NARRATIVE: CASE EVENT DATE: 20180515
